FAERS Safety Report 17746924 (Version 11)
Quarter: 2020Q4

REPORT INFORMATION
  Report Type: Report from Study
  Country: None (occurrence: CH)
  Receive Date: 20200505
  Receipt Date: 20201027
  Transmission Date: 20210113
  Serious: Yes (Hospitalization, Disabling)
  Sender: FDA-Public Use
  Company Number: CH-ABBVIE-20K-151-3391005-00

PATIENT
  Age: 76 Year
  Sex: Male

DRUGS (19)
  1. DUODOPA [Suspect]
     Active Substance: CARBIDOPA\LEVODOPA
     Route: 050
     Dates: start: 202006, end: 2020
  2. DUODOPA [Suspect]
     Active Substance: CARBIDOPA\LEVODOPA
     Dosage: CRD 3.5 ML, NO OTHER VALUES CHANGED
     Route: 050
     Dates: start: 2020, end: 20200924
  3. LISITRIL [Concomitant]
     Active Substance: LISINOPRIL
     Indication: PRODUCT USED FOR UNKNOWN INDICATION
  4. PLAVIX [Concomitant]
     Active Substance: CLOPIDOGREL BISULFATE
     Indication: PRODUCT USED FOR UNKNOWN INDICATION
     Route: 065
  5. AMLODIPIN [Concomitant]
     Active Substance: AMLODIPINE BESYLATE
     Indication: PRODUCT USED FOR UNKNOWN INDICATION
  6. LEVODOPA/CARBIDOPA [Concomitant]
     Active Substance: CARBIDOPA\LEVODOPA
     Indication: PRODUCT USED FOR UNKNOWN INDICATION
     Dosage: 25 MG / 100 MG EMERGENCY MEDICATION: 6:30 AM/12:30PM/3:30 PM/6:30 PM/9:30 PM?1-1-1-1-1
  7. DUODOPA [Suspect]
     Active Substance: CARBIDOPA\LEVODOPA
     Dosage: MORNING DOSE: 10ML, CRD : 3.7ML/H, ED: 2ML, EXTRA DOSE BLOCKING TIME 1H
     Route: 050
     Dates: start: 20200106, end: 202006
  8. DUODOPA [Suspect]
     Active Substance: CARBIDOPA\LEVODOPA
     Dosage: MORNING BOLUS 10.0 MG: 6:00 AM; CRT 3.7 ML/H UNTIL 10 PM; ED: 10 MG
     Route: 050
     Dates: start: 2020, end: 2020
  9. ATORVASTATIN [Concomitant]
     Active Substance: ATORVASTATIN
     Indication: PRODUCT USED FOR UNKNOWN INDICATION
     Dosage: EVENING
  10. METFIN [Concomitant]
     Active Substance: METFORMIN HYDROCHLORIDE
     Indication: PRODUCT USED FOR UNKNOWN INDICATION
  11. REQUIP [Concomitant]
     Active Substance: ROPINIROLE HYDROCHLORIDE
     Indication: PRODUCT USED FOR UNKNOWN INDICATION
  12. PROPOFOL. [Concomitant]
     Active Substance: PROPOFOL
     Indication: PRODUCT USED FOR UNKNOWN INDICATION
     Dates: start: 20200903, end: 20200903
  13. DUODOPA [Suspect]
     Active Substance: CARBIDOPA\LEVODOPA
     Indication: PARKINSON^S DISEASE
     Route: 050
     Dates: start: 20190604, end: 20190614
  14. DUODOPA [Suspect]
     Active Substance: CARBIDOPA\LEVODOPA
     Dosage: MORNING DOSE: 8 ML,?CONTINUOUS RATE DAY: 3.5 ML/H,?EXTRA DOSE: 2 ML 16 H THERAPY
     Route: 050
     Dates: start: 20190614, end: 20200106
  15. DUODOPA [Suspect]
     Active Substance: CARBIDOPA\LEVODOPA
     Dosage: CRD 3.8 ML, NO OTHER VALUES CHANGED
     Route: 050
     Dates: start: 20200924
  16. EXELON [Concomitant]
     Active Substance: RIVASTIGMINE TARTRATE
     Indication: PRODUCT USED FOR UNKNOWN INDICATION
  17. CARBIDOPA/LEVODOPA CR [Concomitant]
     Indication: PRODUCT USED FOR UNKNOWN INDICATION
     Dosage: 25/100MG AT NIGHT
  18. DUODOPA [Suspect]
     Active Substance: CARBIDOPA\LEVODOPA
     Dosage: UP TO 5 EXTRA DOSES PER DAY RECOMMENDED IN ADDITION
     Route: 050
     Dates: start: 20200831, end: 2020
  19. SEQUASE [Concomitant]
     Active Substance: QUETIAPINE FUMARATE
     Indication: PRODUCT USED FOR UNKNOWN INDICATION
     Dosage: EVENING 12.25, NIGHT 25MG

REACTIONS (24)
  - Hallucination [Recovering/Resolving]
  - Parkinsonism [Unknown]
  - Gait disturbance [Not Recovered/Not Resolved]
  - Speech disorder [Recovering/Resolving]
  - Hypertonia [Unknown]
  - Akinesia [Recovering/Resolving]
  - Therapeutic response shortened [Unknown]
  - Parkinson^s disease [Not Recovered/Not Resolved]
  - Bradykinesia [Unknown]
  - Device kink [Recovered/Resolved]
  - Chills [Recovering/Resolving]
  - Device kink [Recovered/Resolved]
  - Joint range of motion decreased [Unknown]
  - Device dislocation [Recovered/Resolved]
  - Device kink [Recovered/Resolved]
  - Cystitis [Not Recovered/Not Resolved]
  - Mobility decreased [Recovering/Resolving]
  - General physical health deterioration [Recovering/Resolving]
  - Dyskinesia [Recovered/Resolved]
  - Drug ineffective [Recovered/Resolved]
  - Demyelinating polyneuropathy [Not Recovered/Not Resolved]
  - Cerebrovascular accident [Recovered/Resolved]
  - Tension [Not Recovered/Not Resolved]
  - Condition aggravated [Recovering/Resolving]

NARRATIVE: CASE EVENT DATE: 20200531
